FAERS Safety Report 7315931-2 (Version None)
Quarter: 2011Q1

REPORT INFORMATION
  Report Type: 
  Country: None (occurrence: None)
  Receive Date: 20110214
  Receipt Date: 20110131
  Transmission Date: 20110831
  Serious: Yes (Hospitalization)
  Sender: FDA-Public Use
  Company Number: 011560

PATIENT
  Age: 75 Year
  Sex: Female

DRUGS (11)
  1. PLETAL [Suspect]
     Indication: PERIPHERAL ARTERIAL OCCLUSIVE DISEASE
     Dosage: 100 MG MILLIGRAM(S), BID, ORAL ; 100 MG MILLIGRAM(S), BID, ORAL
     Route: 048
     Dates: start: 20090520
  2. PLETAL [Suspect]
     Indication: PERIPHERAL ARTERIAL OCCLUSIVE DISEASE
     Dosage: 100 MG MILLIGRAM(S), BID, ORAL ; 100 MG MILLIGRAM(S), BID, ORAL
     Route: 048
     Dates: start: 20080401, end: 20090509
  3. LAC-B (BIFIDOBACTERIUM LACTIS) [Concomitant]
  4. ASPIRIN [Concomitant]
  5. DISOPYRAMIDE [Concomitant]
  6. DAI-KENCHU-TO (DAI-KENCHU-TO) [Concomitant]
  7. LIVALO [Concomitant]
  8. MONTELUKAST SODIUM [Concomitant]
  9. TAKEPRON (LANSOPRAZOLE) [Concomitant]
  10. HEPARIN SODIUM [Concomitant]
  11. BISOPROLOL FUMARATE [Concomitant]

REACTIONS (3)
  - ILEUS [None]
  - PERIPHERAL ISCHAEMIA [None]
  - ILIAC ARTERY STENOSIS [None]
